FAERS Safety Report 11343635 (Version 2)
Quarter: 2015Q4

REPORT INFORMATION
  Report Type: Spontaneous
  Country: US (occurrence: US)
  Receive Date: 20150806
  Receipt Date: 20151019
  Transmission Date: 20160304
  Serious: No
  Sender: FDA-Public Use
  Company Number: PHEH2015US015096

PATIENT
  Sex: Female

DRUGS (3)
  1. TOBI [Suspect]
     Active Substance: TOBRAMYCIN
     Indication: CYSTIC FIBROSIS
     Dosage: 1 DF, BID, CONTINUOSLY
     Route: 055
     Dates: start: 20141012
  2. PULMOZYME [Concomitant]
     Active Substance: DORNASE ALFA
     Indication: PRODUCT USED FOR UNKNOWN INDICATION
     Dosage: 1 DF, QD
     Route: 055
     Dates: start: 20150803
  3. TOBI [Suspect]
     Active Substance: TOBRAMYCIN
     Dosage: 1 DF, BID, CONTINUOSLY
     Route: 055
     Dates: start: 20150805

REACTIONS (1)
  - Off label use [Unknown]
